FAERS Safety Report 7059600-5 (Version None)
Quarter: 2010Q4

REPORT INFORMATION
  Report Type: 
  Country: None (occurrence: None)
  Receive Date: 20101025
  Receipt Date: 20100412
  Transmission Date: 20110411
  Serious: Yes (Death)
  Sender: FDA-Public Use
  Company Number: US-ASTRAZENECA-2009SE19149

PATIENT
  Age: 24568 Day
  Sex: Female

DRUGS (5)
  1. SEROQUEL [Suspect]
     Route: 048
     Dates: start: 20041102
  2. POTASSIUM [Concomitant]
     Route: 048
     Dates: start: 20041102
  3. ZOLOFT [Concomitant]
     Route: 048
     Dates: start: 20041102
  4. LASIX [Concomitant]
     Route: 048
     Dates: start: 20041102
  5. LORTAB [Concomitant]

REACTIONS (3)
  - CARDIOGENIC SHOCK [None]
  - CARDIOMYOPATHY [None]
  - DIABETES MELLITUS [None]
